FAERS Safety Report 8198880-X (Version None)
Quarter: 2012Q1

REPORT INFORMATION
  Report Type: 
  Country: None (occurrence: None)
  Receive Date: 20120309
  Receipt Date: 20120222
  Transmission Date: 20120608
  Serious: No
  Sender: FDA-Public Use
  Company Number: US-AMGEN-USASP2011053473

PATIENT
  Age: 67 Year
  Sex: Female

DRUGS (9)
  1. LISINOPRIL [Concomitant]
  2. WOMEN'S ONE-A-DAY [Concomitant]
     Dosage: UNK
  3. PROLIA [Suspect]
     Indication: OSTEOPOROSIS POSTMENOPAUSAL
     Dosage: 60 MG, Q6MO
     Dates: start: 20110816
  4. NORVASC [Concomitant]
  5. NAPROSYN [Concomitant]
     Dosage: UNK
  6. ALLEGRA [Concomitant]
  7. AMLODIPINE [Concomitant]
     Dosage: UNK
  8. OSCAL D                            /00944201/ [Concomitant]
  9. PREVACID [Concomitant]

REACTIONS (6)
  - IMPAIRED HEALING [None]
  - DERMATITIS CONTACT [None]
  - INDURATION [None]
  - CONTUSION [None]
  - ULCER [None]
  - ERYTHEMA [None]
